FAERS Safety Report 4984453-6 (Version None)
Quarter: 2006Q2

REPORT INFORMATION
  Report Type: 
  Country: None (occurrence: None)
  Receive Date: 20060427
  Receipt Date: 20060322
  Transmission Date: 20061013
  Serious: Yes (Hospitalization)
  Sender: FDA-Public Use
  Company Number: JP-JPN-A200601002

PATIENT
  Age: 59 Year
  Sex: Female

DRUGS (10)
  1. PAXIL [Suspect]
     Indication: DEPRESSION
     Dosage: 10MG TWICE PER DAY
     Route: 048
     Dates: start: 20011114, end: 20030107
  2. PAXIL [Suspect]
     Dosage: 20MG TWICE PER DAY
     Route: 048
     Dates: start: 20030108, end: 20031024
  3. PAXIL [Suspect]
     Dosage: 10MG TWICE PER DAY
     Route: 048
     Dates: start: 20031025, end: 20040220
  4. PAXIL [Suspect]
     Dosage: 30MG PER DAY
     Route: 048
     Dates: start: 20040220, end: 20060310
  5. LEXOTAN [Concomitant]
     Indication: ANXIETY
     Dosage: 2MG PER DAY
     Route: 048
  6. HALCION [Concomitant]
     Indication: INSOMNIA
     Dosage: .25MG PER DAY
     Route: 048
  7. GOODMIN [Concomitant]
     Indication: INSOMNIA
     Dosage: .5MG PER DAY
     Route: 048
  8. BLOPRESS [Concomitant]
     Indication: HYPERTENSION
     Dosage: 4MG PER DAY
     Route: 048
     Dates: start: 20051127
  9. ROHYPNOL [Concomitant]
     Indication: INSOMNIA
     Dosage: 2MG PER DAY
     Route: 048
     Dates: start: 20060327
  10. TOLEDOMIN [Concomitant]
     Indication: DEPRESSION
     Dosage: 100MG PER DAY
     Route: 048
     Dates: start: 19990601, end: 20011113

REACTIONS (4)
  - HALLUCINATION, VISUAL [None]
  - INCOHERENT [None]
  - PERSECUTORY DELUSION [None]
  - RESTLESSNESS [None]
